FAERS Safety Report 16720858 (Version 1)
Quarter: 2019Q3

REPORT INFORMATION
  Report Type: Spontaneous
  Country: CN (occurrence: CN)
  Receive Date: 20190820
  Receipt Date: 20190820
  Transmission Date: 20191005
  Serious: Yes (Hospitalization)
  Sender: FDA-Public Use
  Company Number: PHHY2019CN192101

PATIENT
  Age: 54 Month
  Sex: Male
  Weight: 26 kg

DRUGS (4)
  1. CEFTEZOLE SODIUM [Concomitant]
     Active Substance: CEFTEZOLE SODIUM
     Indication: ANTI-INFECTIVE THERAPY
     Dosage: UNK
     Route: 065
     Dates: start: 20171220
  2. PHENOBARBITAL. [Concomitant]
     Active Substance: PHENOBARBITAL
     Indication: EPILEPSY
     Dosage: UNK
     Route: 065
     Dates: start: 20171220
  3. LEVETIRACETAM. [Concomitant]
     Active Substance: LEVETIRACETAM
     Indication: EPILEPSY
     Dosage: UNK
     Route: 065
     Dates: start: 20171220
  4. OXCARBAZEPINE. [Suspect]
     Active Substance: OXCARBAZEPINE
     Indication: EPILEPSY
     Dosage: 150 MG, Q12H
     Route: 065
     Dates: start: 20171223

REACTIONS (5)
  - Chills [Recovering/Resolving]
  - Chest discomfort [Recovering/Resolving]
  - Anaphylactic shock [Recovering/Resolving]
  - Pyrexia [Recovering/Resolving]
  - Palpitations [Recovering/Resolving]
